FAERS Safety Report 7399539-9 (Version None)
Quarter: 2011Q2

REPORT INFORMATION
  Report Type: 
  Country: None (occurrence: None)
  Receive Date: 20110407
  Receipt Date: 20110304
  Transmission Date: 20111010
  Serious: Yes (Other)
  Sender: FDA-Public Use
  Company Number: US-BAYER-201037997NA

PATIENT
  Sex: Female
  Weight: 83.9 kg

DRUGS (28)
  1. YAZ [Suspect]
     Indication: ACNE
     Dosage: UNK
     Dates: start: 20040101
  2. MULTI-VITAMIN [Concomitant]
  3. FIORICET [Concomitant]
     Indication: PAIN
  4. UNCODEABLE ^UNCLASSIFIABLE^ [Concomitant]
  5. CONCERTA [Concomitant]
  6. AMOXICILLIN [Concomitant]
  7. HYOSCYAMINE [Concomitant]
  8. OCELLA [Suspect]
     Indication: ACNE
     Dosage: UNK
  9. UNCODEABLE ^UNCLASSIFIABLE^ [Concomitant]
     Indication: PAIN
  10. PAXIL [Concomitant]
     Dosage: 500 MG, UNK
  11. MAALOX [Concomitant]
  12. VICODIN [Concomitant]
     Dosage: UNK UNK, PRN
  13. FOLIC ACID [Concomitant]
  14. BUSPAR [Concomitant]
     Indication: BIPOLAR DISORDER
  15. DEPAKOTE [Concomitant]
     Indication: BIPOLAR DISORDER
     Dosage: 500 UNK, UNK
  16. IBUPROFEN [Concomitant]
  17. NAPROXEN [Concomitant]
     Indication: PAIN
  18. LEVBID [Concomitant]
     Indication: IRRITABLE BOWEL SYNDROME
     Dosage: 0.375 UNK, UNK
  19. ACETAMINOPHEN [Concomitant]
     Dosage: UNK UNK, PRN
  20. ZANTAC [Concomitant]
     Dosage: 150 MG/24HR, UNK
  21. DIPHENHYDRAMINE HCL [Concomitant]
  22. CARAFATE [Concomitant]
  23. YASMIN [Suspect]
     Indication: ACNE
     Dosage: UNK
  24. ALBUTEROL [Concomitant]
  25. ZOLOFT [Concomitant]
     Indication: BIPOLAR DISORDER
     Dosage: 100 MG/24HR, UNK
  26. CORTICOSTEROIDS [Concomitant]
     Indication: UPPER RESPIRATORY TRACT INFECTION
  27. CERTA [Concomitant]
  28. DICYCLOMINE [Concomitant]
     Dosage: 20 MG, PRN

REACTIONS (2)
  - SCAR [None]
  - GALLBLADDER DISORDER [None]
